FAERS Safety Report 7450921-0 (Version None)
Quarter: 2011Q2

REPORT INFORMATION
  Report Type: 
  Country: None (occurrence: None)
  Receive Date: 20110502
  Receipt Date: 20110427
  Transmission Date: 20111010
  Serious: No
  Sender: FDA-Public Use
  Company Number: US-PFIZER INC-2011086004

PATIENT
  Sex: Female
  Weight: 49.887 kg

DRUGS (9)
  1. AMITRIPTYLINE HCL [Suspect]
     Dosage: UNK
  2. PROZAC [Suspect]
     Dosage: UNK
  3. GEODON [Concomitant]
     Dosage: UNK
     Dates: end: 20110427
  4. VITAMIN B COMPLEX CAP [Concomitant]
     Dosage: UNK
  5. SEROQUEL [Concomitant]
     Indication: SLEEP DISORDER
     Dosage: SPLITTING THE 50MG TABLETS IN HALF
     Route: 048
  6. PRISTIQ [Suspect]
     Indication: DEPRESSION
     Dosage: 50 MG/DAY
     Route: 048
     Dates: start: 20110414
  7. NEURONTIN [Suspect]
     Dosage: UNK
  8. GEODON [Concomitant]
     Dosage: UNK
     Dates: end: 20110427
  9. VITAMIN D [Concomitant]
     Dosage: UNK

REACTIONS (13)
  - FEELING COLD [None]
  - MYALGIA [None]
  - MUSCULOSKELETAL STIFFNESS [None]
  - COORDINATION ABNORMAL [None]
  - PUPILLARY DISORDER [None]
  - PARAESTHESIA [None]
  - DIZZINESS [None]
  - SENSITIVITY OF TEETH [None]
  - HOT FLUSH [None]
  - ARTHRALGIA [None]
  - DRY SKIN [None]
  - FEELING ABNORMAL [None]
  - EAR DISORDER [None]
